FAERS Safety Report 13695034 (Version 3)
Quarter: 2017Q3

REPORT INFORMATION
  Report Type: Spontaneous
  Country: RU (occurrence: RU)
  Receive Date: 20170627
  Receipt Date: 20170712
  Transmission Date: 20171127
  Serious: Yes (Other)
  Sender: FDA-Public Use
  Company Number: RU-BAYER-2017-117548

PATIENT
  Age: 25 Year
  Sex: Female
  Weight: 53 kg

DRUGS (1)
  1. YAZ [Suspect]
     Active Substance: DROSPIRENONE\ETHINYL ESTRADIOL
     Indication: CONTRACEPTION
     Dosage: 1 DF, QD
     Route: 048
     Dates: start: 201702, end: 201704

REACTIONS (6)
  - Dyspnoea [None]
  - Thrombosis [None]
  - General physical health deterioration [None]
  - Respiratory disorder [None]
  - Bundle branch block right [None]
  - Angina pectoris [None]

NARRATIVE: CASE EVENT DATE: 20170425
